FAERS Safety Report 9072823 (Version 3)
Quarter: 2017Q2

REPORT INFORMATION
  Report Type: Spontaneous
  Country: US (occurrence: US)
  Receive Date: 20130207
  Receipt Date: 20170616
  Transmission Date: 20170830
  Serious: No
  Sender: FDA-Public Use
  Company Number: US-ASTELLAS-2013US001262

PATIENT
  Sex: Female

DRUGS (1)
  1. PROGRAF [Suspect]
     Active Substance: TACROLIMUS\TACROLIMUS ANHYDROUS
     Indication: RENAL TRANSPLANT
     Dosage: 0.5 MG, TWICE DAILY
     Route: 048
     Dates: start: 20100301

REACTIONS (3)
  - Underdose [Unknown]
  - Memory impairment [Unknown]
  - Treatment noncompliance [Unknown]
